FAERS Safety Report 5250147-5 (Version None)
Quarter: 2007Q1

REPORT INFORMATION
  Report Type: 
  Country: None (occurrence: None)
  Receive Date: 20070228
  Receipt Date: 20060214
  Transmission Date: 20070707
  Serious: No
  Sender: FDA-Public Use
  Company Number: US-GLAXOSMITHKLINE-A0593650A

PATIENT
  Age: 51 Year
  Sex: Female

DRUGS (10)
  1. LAMICTAL [Suspect]
     Indication: BIPOLAR DISORDER
     Dosage: 100MG PER DAY
     Route: 048
     Dates: start: 20051101
  2. KLONOPIN [Concomitant]
  3. LISINOPRIL [Concomitant]
  4. RISPERDAL [Concomitant]
  5. EFFEXOR XR [Concomitant]
  6. AMBIEN [Concomitant]
  7. ADVAIR DISKUS 100/50 [Concomitant]
  8. COMBIVENT [Concomitant]
  9. ALBUTEROL [Concomitant]
  10. BENADRYL [Concomitant]

REACTIONS (1)
  - PRURITUS [None]
